FAERS Safety Report 6303977-2 (Version None)
Quarter: 2009Q3

REPORT INFORMATION
  Report Type: 
  Country: None (occurrence: None)
  Receive Date: 20090810
  Receipt Date: 20090730
  Transmission Date: 20100115
  Serious: Yes (Death, Hospitalization)
  Sender: FDA-Public Use
  Company Number: GB-PFIZER INC-2009248080

PATIENT
  Age: 63 Year

DRUGS (1)
  1. SUNITINIB MALATE [Suspect]
     Indication: RENAL CANCER METASTATIC

REACTIONS (1)
  - LOWER RESPIRATORY TRACT INFECTION [None]
